FAERS Safety Report 20697906 (Version 1)
Quarter: 2022Q2

REPORT INFORMATION
  Report Type: Spontaneous
  Country: FR (occurrence: FR)
  Receive Date: 20220412
  Receipt Date: 20220412
  Transmission Date: 20220721
  Serious: Yes (Hospitalization, Other)
  Sender: FDA-Public Use
  Company Number: FR-SA-2017SA032108

PATIENT
  Age: 17 Year
  Sex: Female

DRUGS (20)
  1. ALPRAZOLAM [Suspect]
     Active Substance: ALPRAZOLAM
     Indication: Product used for unknown indication
     Dosage: UNK
     Route: 065
  2. ALPRAZOLAM [Suspect]
     Active Substance: ALPRAZOLAM
     Dosage: 0.5 DOSAGE FORM, ONCE A DAY
     Route: 065
     Dates: start: 201611
  3. ALPRAZOLAM [Suspect]
     Active Substance: ALPRAZOLAM
     Dosage: 30 DOSAGE FORM (1X)
     Route: 065
     Dates: start: 20161127
  4. THALIDOMIDE [Suspect]
     Active Substance: THALIDOMIDE
     Indication: Cutaneous lupus erythematosus
     Dosage: 50 MILLIGRAM, ONCE A DAY
     Route: 065
  5. THALIDOMIDE [Suspect]
     Active Substance: THALIDOMIDE
     Dosage: 100 MILLIGRAM, ONCE A DAY
     Route: 065
  6. THALIDOMIDE [Suspect]
     Active Substance: THALIDOMIDE
     Dosage: 1 DOSAGE FORM
     Route: 048
     Dates: start: 20160613
  7. THALIDOMIDE [Suspect]
     Active Substance: THALIDOMIDE
     Dosage: 28 DOSAGE FORM (1X)
     Route: 048
     Dates: start: 20161127, end: 20161127
  8. PLAQUENIL [Suspect]
     Active Substance: HYDROXYCHLOROQUINE SULFATE
     Indication: Cutaneous lupus erythematosus
     Dosage: 2 DOSAGE FORM, ONCE A DAY
     Route: 048
     Dates: start: 201512
  9. PLAQUENIL [Suspect]
     Active Substance: HYDROXYCHLOROQUINE SULFATE
     Dosage: 200 MILLIGRAM, TWO TIMES A DAY
     Route: 065
     Dates: start: 201512, end: 201606
  10. PLAQUENIL [Suspect]
     Active Substance: HYDROXYCHLOROQUINE SULFATE
     Dosage: 45 DOSAGE FORM (1X)
     Route: 048
     Dates: start: 20161127, end: 20161127
  11. NIFEDIPINE [Concomitant]
     Active Substance: NIFEDIPINE
     Indication: Product used for unknown indication
     Dosage: UNK (LP 30 1 PER DAY)
     Route: 065
  12. ACETAMINOPHEN [Concomitant]
     Active Substance: ACETAMINOPHEN
     Indication: Product used for unknown indication
     Dosage: 1 GRAM, FOUR TIMES/DAY (IF REQUIRED)
     Route: 065
  13. TROPATEPINE HYDROCHLORIDE [Concomitant]
     Active Substance: TROPATEPINE HYDROCHLORIDE
     Indication: Product used for unknown indication
     Dosage: 2 DOSAGE FORM, TWO TIMES A DAY
     Route: 065
  14. IMOVANE [Concomitant]
     Active Substance: ZOPICLONE
     Indication: Product used for unknown indication
     Dosage: UNK (1 COMP / TABLET)
     Route: 065
  15. REVLIMID [Concomitant]
     Active Substance: LENALIDOMIDE
     Indication: Product used for unknown indication
     Dosage: 5 MILLIGRAM, ONCE A DAY
     Route: 065
  16. ASPIRIN [Concomitant]
     Active Substance: ASPIRIN
     Indication: Product used for unknown indication
     Dosage: 100 MILLIGRAM, ONCE A DAY
     Route: 065
  17. MINERAL OIL [Concomitant]
     Active Substance: MINERAL OIL
     Indication: Product used for unknown indication
     Dosage: UNK (LANSOYL SINGLE DOSE 1 DOSE AT 8:00, 1 DOSE AT 12:00, 1 DOSE AT 19:00)
     Route: 065
  18. XANAX [Concomitant]
     Active Substance: ALPRAZOLAM
     Indication: Product used for unknown indication
     Dosage: 1 DOSAGE FORM, 3 TIMES A DAY (1 TABLET AT 8:00 , 1 TABLET AT 12:00, 1 TABLET AT 19:00)
     Route: 065
  19. RISPERDAL [Concomitant]
     Active Substance: RISPERIDONE
     Indication: Product used for unknown indication
     Dosage: 1 DOSAGE FORM, TWO TIMES A DAY
     Route: 065
  20. DUPHALAC [Concomitant]
     Active Substance: LACTULOSE
     Indication: Product used for unknown indication
     Dosage: UNK (1 SACHET AT 8 :00, 1 SACHET AT 12 :00 , 1 SACHET AT 19:00)
     Route: 065

REACTIONS (31)
  - Cardiac arrest [Unknown]
  - Suicide attempt [Recovered/Resolved]
  - Loss of consciousness [Unknown]
  - Delirium [Unknown]
  - Depression [Unknown]
  - Nightmare [Unknown]
  - Arthralgia [Not Recovered/Not Resolved]
  - Psychotic disorder [Unknown]
  - Sleep apnoea syndrome [Unknown]
  - Weight decreased [Recovered/Resolved]
  - Hallucination, auditory [Unknown]
  - Chronic cutaneous lupus erythematosus [Unknown]
  - Toxicity to various agents [Unknown]
  - Back pain [Unknown]
  - Mental disorder [Unknown]
  - Rash erythematous [Unknown]
  - Psychomotor retardation [Unknown]
  - Headache [Unknown]
  - Drug intolerance [Unknown]
  - Fatigue [Unknown]
  - Malaise [Unknown]
  - Peripheral coldness [Recovering/Resolving]
  - Frostbite [Recovering/Resolving]
  - Diarrhoea [Unknown]
  - Asthenia [Unknown]
  - Foot fracture [Unknown]
  - Condition aggravated [Unknown]
  - Persecutory delusion [Unknown]
  - Sleep disorder [Unknown]
  - Amnesia [Unknown]
  - Overdose [Unknown]

NARRATIVE: CASE EVENT DATE: 20160301
